FAERS Safety Report 20481153 (Version 7)
Quarter: 2022Q3

REPORT INFORMATION
  Report Type: Report from Study
  Country: US (occurrence: US)
  Receive Date: 20220216
  Receipt Date: 20220804
  Transmission Date: 20221027
  Serious: No
  Sender: FDA-Public Use
  Company Number: US-NOVARTISTESTPH-NVSC2022US035729

PATIENT
  Sex: Female

DRUGS (3)
  1. ENTRESTO [Suspect]
     Active Substance: SACUBITRIL\VALSARTAN
     Indication: Product used for unknown indication
     Dosage: 1 DOSAGE FORM, BID (24/26 MG)
     Route: 048
     Dates: start: 202108
  2. METOPROLOL [Suspect]
     Active Substance: METOPROLOL
     Indication: Product used for unknown indication
     Dosage: 37.5 MG (BED TIME)
     Route: 065
     Dates: start: 202108
  3. METOPROLOL [Suspect]
     Active Substance: METOPROLOL
     Dosage: 50 MG, OTHER
     Route: 065

REACTIONS (21)
  - Feeling abnormal [Unknown]
  - Vertigo positional [Unknown]
  - Seasonal allergy [Unknown]
  - Nasopharyngitis [Recovering/Resolving]
  - Joint swelling [Recovering/Resolving]
  - Fluid retention [Unknown]
  - Arthralgia [Not Recovered/Not Resolved]
  - Condition aggravated [Unknown]
  - Oropharyngeal pain [Recovering/Resolving]
  - Vision blurred [Unknown]
  - Nasal congestion [Recovering/Resolving]
  - Malaise [Recovering/Resolving]
  - COVID-19 [Recovering/Resolving]
  - Diarrhoea [Unknown]
  - Dizziness postural [Unknown]
  - Cough [Unknown]
  - Hypotension [Recovering/Resolving]
  - Rash macular [Unknown]
  - Dizziness [Unknown]
  - Headache [Recovering/Resolving]
  - Inappropriate schedule of product administration [Unknown]
